FAERS Safety Report 10945313 (Version 2)
Quarter: 2015Q2

REPORT INFORMATION
  Report Type: Spontaneous
  Country: FR (occurrence: FR)
  Receive Date: 20150323
  Receipt Date: 20150501
  Transmission Date: 20150821
  Serious: Yes (Disabling, Other)
  Sender: FDA-Public Use
  Company Number: FR-ELI_LILLY_AND_COMPANY-FR201503001971

PATIENT
  Age: 62 Year
  Sex: Female
  Weight: 69 kg

DRUGS (6)
  1. PACLITAXEL. [Suspect]
     Active Substance: PACLITAXEL
     Indication: PRODUCT USED FOR UNKNOWN INDICATION
     Dosage: 80 MG/M2, UNKNOWN
     Route: 042
     Dates: start: 20141103, end: 20141202
  2. OXALIPLATINE [Suspect]
     Active Substance: OXALIPLATIN
     Indication: PRODUCT USED FOR UNKNOWN INDICATION
     Route: 065
  3. CYRAMZA [Suspect]
     Active Substance: RAMUCIRUMAB
     Indication: PRODUCT USED FOR UNKNOWN INDICATION
     Dosage: 8 MG/KG, UNKNOWN
     Route: 042
     Dates: start: 20141103
  4. TAXOTERE [Suspect]
     Active Substance: DOCETAXEL
     Indication: PRODUCT USED FOR UNKNOWN INDICATION
     Route: 065
  5. RANITIDINE [Concomitant]
     Active Substance: RANITIDINE\RANITIDINE HYDROCHLORIDE
     Indication: PREMEDICATION
     Dosage: 50 MG, UNKNOWN
     Dates: start: 20141103, end: 20141202
  6. DEXAMETHASONE. [Concomitant]
     Active Substance: DEXAMETHASONE
     Indication: PREMEDICATION
     Dosage: 10 MG, UNKNOWN
     Dates: start: 20141103, end: 20141202

REACTIONS (9)
  - Blood alkaline phosphatase increased [Unknown]
  - Neutrophil count decreased [Unknown]
  - Haemoglobin decreased [Unknown]
  - Aspartate aminotransferase increased [Unknown]
  - Neuropathy peripheral [Not Recovered/Not Resolved]
  - Platelet count decreased [Unknown]
  - International normalised ratio abnormal [Unknown]
  - Blood bilirubin increased [Unknown]
  - Alanine aminotransferase increased [Unknown]

NARRATIVE: CASE EVENT DATE: 20141215
